FAERS Safety Report 4376022-6 (Version None)
Quarter: 2004Q2

REPORT INFORMATION
  Report Type: 
  Country: None (occurrence: None)
  Receive Date: 20040607
  Receipt Date: 20040525
  Transmission Date: 20050107
  Serious: Yes (Hospitalization)
  Sender: FDA-Public Use
  Company Number: 04P-020-0255982-00

PATIENT
  Age: 7 Year
  Sex: Male
  Weight: 34 kg

DRUGS (5)
  1. DEPAKENE [Suspect]
     Indication: FEBRILE CONVULSION
     Dosage: 300 MG, 2 IN 1 D, PER ORAL
     Route: 048
  2. DEPAKOTE [Suspect]
     Indication: FEBRILE CONVULSION
     Dosage: 250 MG, 2 IN 1 D, PER ORAL
     Route: 048
  3. DEPAKOTE [Suspect]
     Indication: DISEASE PROGRESSION
     Dosage: 625 MG, 1 IN 1 D, PER ORAL
     Route: 048
  4. DEPAKOTE [Suspect]
     Indication: FEBRILE CONVULSION
     Dosage: 625 MG, 1 IN 1 D, PER ORAL
     Route: 048
  5. CLOBAZAM [Concomitant]

REACTIONS (8)
  - AGITATION [None]
  - FATIGUE [None]
  - GASTRITIS [None]
  - INCONTINENCE [None]
  - INFLUENZA LIKE ILLNESS [None]
  - PHARYNGITIS [None]
  - TACHYCARDIA [None]
  - TREMOR [None]
